FAERS Safety Report 5785660-5 (Version None)
Quarter: 2008Q2

REPORT INFORMATION
  Report Type: 
  Country: None (occurrence: None)
  Receive Date: 20080605
  Receipt Date: 20080313
  Transmission Date: 20081010
  Serious: No
  Sender: FDA-Public Use
  Company Number: A0711209A

PATIENT
  Age: 64 Year
  Sex: Female

DRUGS (3)
  1. ALLI [Suspect]
     Dates: end: 20080221
  2. SYNTHROID [Concomitant]
  3. LISINOPRIL [Concomitant]

REACTIONS (6)
  - BLOOD PRESSURE INCREASED [None]
  - DIARRHOEA [None]
  - FAECES DISCOLOURED [None]
  - FLATULENCE [None]
  - GASTROINTESTINAL PAIN [None]
  - PHARMACEUTICAL PRODUCT COMPLAINT [None]
